FAERS Safety Report 16467888 (Version 1)
Quarter: 2019Q2

REPORT INFORMATION
  Report Type: Other
  Country: ER (occurrence: ER)
  Receive Date: 20190624
  Receipt Date: 20190624
  Transmission Date: 20190711
  Serious: Yes (Hospitalization)
  Sender: FDA-Public Use
  Company Number: ER-FDC LIMITED-2069506

PATIENT
  Age: 28 Year
  Sex: Male
  Weight: 56 kg

DRUGS (1)
  1. CIPROFLOXACIN. [Suspect]
     Active Substance: CIPROFLOXACIN
     Indication: URINARY TRACT INFECTION
     Route: 048
     Dates: start: 20171204

REACTIONS (3)
  - Hepatic enzyme increased [Recovered/Resolved]
  - Lipids increased [Unknown]
  - Hypoglycaemia [Recovered/Resolved]

NARRATIVE: CASE EVENT DATE: 201712
